FAERS Safety Report 5760984-6 (Version None)
Quarter: 2008Q2

REPORT INFORMATION
  Report Type: 
  Country: None (occurrence: None)
  Receive Date: 20080606
  Receipt Date: 20070517
  Transmission Date: 20081010
  Serious: No
  Sender: FDA-Public Use
  Company Number: US-ASTRAZENECA-2007UW12249

PATIENT
  Age: 70 Year
  Sex: Female

DRUGS (3)
  1. PRILOSEC [Suspect]
     Route: 048
  2. TYLENOL W/ CODEINE NO. 3 [Concomitant]
  3. VARIOUS OTHER UNSPECIFIED MEDICATIONS [Concomitant]

REACTIONS (1)
  - ORAL CANDIDIASIS [None]
